FAERS Safety Report 16915848 (Version 1)
Quarter: 2019Q4

REPORT INFORMATION
  Report Type: Spontaneous
  Country: FR (occurrence: FR)
  Receive Date: 20191014
  Receipt Date: 20191014
  Transmission Date: 20200122
  Serious: Yes (Hospitalization, Other)
  Sender: FDA-Public Use
  Company Number: FR-SA-2019SA277128

PATIENT
  Age: 66 Year
  Sex: Male

DRUGS (14)
  1. DOLIPRANE [Concomitant]
     Active Substance: ACETAMINOPHEN
  2. AVAMYS [Concomitant]
     Active Substance: FLUTICASONE FUROATE
  3. VERAPAMIL HCL [Concomitant]
     Active Substance: VERAPAMIL HYDROCHLORIDE
  4. PRADAXA [Concomitant]
     Active Substance: DABIGATRAN ETEXILATE MESYLATE
  5. LOVENOX [Concomitant]
     Active Substance: ENOXAPARIN SODIUM
  6. HEMIGOXINE NATIVELLE [Concomitant]
     Active Substance: DIGOXIN
  7. IBUFETUM [Concomitant]
     Active Substance: IBUPROFEN
  8. KEPPRA [Concomitant]
     Active Substance: LEVETIRACETAM
  9. DIFFU K [Concomitant]
     Active Substance: POTASSIUM CHLORIDE
  10. PANTOPRAZOLE [Concomitant]
     Active Substance: PANTOPRAZOLE
  11. CORDARONE [Concomitant]
     Active Substance: AMIODARONE HYDROCHLORIDE
  12. ZYMAD [Concomitant]
     Active Substance: CHOLECALCIFEROL
  13. OFLOCET [Suspect]
     Active Substance: OFLOXACIN
     Indication: DEVICE RELATED INFECTION
     Dosage: 600 MG, QD
     Route: 048
     Dates: start: 20190902
  14. RIFADINE [Suspect]
     Active Substance: RIFAMPIN
     Indication: DEVICE RELATED INFECTION
     Dosage: 2400 MG, QD
     Route: 042
     Dates: start: 20190902, end: 20190904

REACTIONS (3)
  - Jaundice cholestatic [Recovering/Resolving]
  - Condition aggravated [Recovering/Resolving]
  - Blood bilirubin increased [Recovering/Resolving]

NARRATIVE: CASE EVENT DATE: 20190903
